FAERS Safety Report 9125754 (Version 3)
Quarter: 2013Q2

REPORT INFORMATION
  Report Type: Spontaneous
  Country: GB (occurrence: GB)
  Receive Date: 20130227
  Receipt Date: 20130409
  Transmission Date: 20140414
  Serious: Yes (Hospitalization, Other)
  Sender: FDA-Public Use
  Company Number: PHHY2013GB017743

PATIENT
  Age: 19 Year
  Sex: Male
  Weight: 70 kg

DRUGS (4)
  1. ESOMEPRAZOLE [Suspect]
     Indication: GASTROINTESTINAL DISORDER
     Dosage: 40 MG DAILY
     Route: 048
     Dates: start: 20130207, end: 20130208
  2. OMEPRAZOLE [Suspect]
     Indication: ABDOMINAL DISTENSION
     Route: 048
  3. OMEPRAZOLE [Suspect]
     Dosage: 20 MG, QD
     Route: 048
  4. OMEPRAZOLE [Suspect]
     Dosage: 40 MG, QD
     Route: 048

REACTIONS (2)
  - Cytomegalovirus infection [Unknown]
  - Stevens-Johnson syndrome [Unknown]
